FAERS Safety Report 6575335-7 (Version None)
Quarter: 2010Q1

REPORT INFORMATION
  Report Type: 
  Country: None (occurrence: None)
  Receive Date: 20100209
  Receipt Date: 20100202
  Transmission Date: 20100710
  Serious: Yes (Hospitalization)
  Sender: FDA-Public Use
  Company Number: JP-ROCHE-681877

PATIENT
  Sex: Male
  Weight: 56 kg

DRUGS (9)
  1. ACTEMRA [Suspect]
     Indication: STILL'S DISEASE ADULT ONSET
     Route: 041
     Dates: start: 20090813, end: 20100113
  2. RINDERON [Suspect]
     Indication: STILL'S DISEASE ADULT ONSET
     Route: 048
  3. NEORAL [Suspect]
     Indication: STILL'S DISEASE ADULT ONSET
     Route: 048
  4. BAKTAR [Concomitant]
     Route: 048
  5. TAKEPRON [Concomitant]
     Route: 048
  6. CODEINE SULFATE [Concomitant]
     Route: 048
  7. PONTAL [Concomitant]
     Route: 048
  8. BLOPRESS [Concomitant]
     Route: 048
  9. FUNGIZONE [Concomitant]
     Route: 048

REACTIONS (1)
  - PNEUMONIA PNEUMOCOCCAL [None]
